FAERS Safety Report 4757994-4 (Version None)
Quarter: 2005Q3

REPORT INFORMATION
  Report Type: 
  Country: None (occurrence: None)
  Receive Date: 20050826
  Receipt Date: 20050622
  Transmission Date: 20060218
  Serious: No
  Sender: FDA-Public Use
  Company Number: WAES 054USA01335

PATIENT
  Age: 67 Year
  Sex: Female
  Weight: 75.2971 kg

DRUGS (7)
  1. ZETIA [Suspect]
     Indication: BLOOD CHOLESTEROL INCREASED
     Dosage: 10 MG/DAILY/PO
     Route: 048
     Dates: start: 20031001, end: 20050131
  2. ZOCOR [Suspect]
     Dosage: 40 MG/DAILY/PO
     Route: 048
     Dates: start: 20031001, end: 20050131
  3. ALTACE [Concomitant]
  4. DEMADEX [Concomitant]
  5. KLOR-CON [Concomitant]
  6. NEXIUM [Concomitant]
  7. SYNTHROID [Concomitant]

REACTIONS (4)
  - MUSCLE SPASMS [None]
  - MYALGIA [None]
  - PAIN [None]
  - SKIN DISCOLOURATION [None]
